FAERS Safety Report 6568515-8 (Version None)
Quarter: 2010Q1

REPORT INFORMATION
  Report Type: 
  Country: None (occurrence: None)
  Receive Date: 20100203
  Receipt Date: 20100125
  Transmission Date: 20100710
  Serious: Yes (Hospitalization, Other)
  Sender: FDA-Public Use
  Company Number: FR-BRISTOL-MYERS SQUIBB COMPANY-14913776

PATIENT
  Age: 86 Year
  Sex: Male

DRUGS (5)
  1. FOZITEC TABS 10 MG [Suspect]
     Dosage: 1 DF=0.5 DOSAGE FORM DOSE DECREASED TO A HALF DOSE
     Route: 048
     Dates: end: 20091106
  2. LASILIX [Concomitant]
     Dosage: TABS
  3. PLAVIX [Concomitant]
  4. CARDENSIEL [Concomitant]
     Dosage: TABS
  5. PERMIXON [Concomitant]

REACTIONS (5)
  - ARRHYTHMIA [None]
  - DIARRHOEA [None]
  - HYPERKALAEMIA [None]
  - PROSTATITIS [None]
  - RENAL FAILURE ACUTE [None]
